FAERS Safety Report 4822779-7 (Version None)
Quarter: 2005Q4

REPORT INFORMATION
  Report Type: 
  Country: None (occurrence: None)
  Receive Date: 20051104
  Receipt Date: 20051027
  Transmission Date: 20060501
  Serious: Yes (Hospitalization)
  Sender: FDA-Public Use
  Company Number: CAP05000326

PATIENT
  Age: 55 Year
  Sex: Female

DRUGS (3)
  1. ASACOL [Suspect]
     Dosage: 800 MG 4 TIMES DAILY, ORAL
     Route: 048
     Dates: start: 19940101
  2. TYLENOL W/ CODEINE NO. 3 [Concomitant]
  3. ESTROGENS SOL/INJ [Concomitant]

REACTIONS (8)
  - DIARRHOEA [None]
  - DRUG DOSE OMISSION [None]
  - FOOD POISONING [None]
  - HAEMATEMESIS [None]
  - INCORRECT DOSE ADMINISTERED [None]
  - PHARMACEUTICAL PRODUCT COMPLAINT [None]
  - TREATMENT NONCOMPLIANCE [None]
  - VOMITING [None]
